FAERS Safety Report 24769320 (Version 1)
Quarter: 2024Q4

REPORT INFORMATION
  Report Type: Spontaneous
  Country: JP (occurrence: JP)
  Receive Date: 20241224
  Receipt Date: 20241224
  Transmission Date: 20250115
  Serious: Yes (Hospitalization)
  Sender: BOEHRINGER INGELHEIM
  Company Number: JP-BoehringerIngelheim-2024-BI-069432

PATIENT
  Age: 59 Year
  Sex: Female
  Weight: 46.2 kg

DRUGS (1)
  1. TELMISARTAN [Suspect]
     Active Substance: TELMISARTAN
     Indication: Hypertension
     Dosage: DAILY DOSE: 20.0 MILLIGRAM(S)

REACTIONS (5)
  - Acute kidney injury [Recovering/Resolving]
  - Fanconi syndrome [Recovering/Resolving]
  - Constipation [Unknown]
  - Fall [Unknown]
  - Contusion [Unknown]
